FAERS Safety Report 18052436 (Version 2)
Quarter: 2023Q4

REPORT INFORMATION
  Report Type: Spontaneous
  Country: US (occurrence: US)
  Receive Date: 20200721
  Receipt Date: 20231020
  Transmission Date: 20240110
  Serious: Yes (Other)
  Sender: FDA-Public Use
  Company Number: US-PURDUE-USA-2020-0158123

PATIENT
  Age: 70 Year

DRUGS (5)
  1. OXYCODONE HYDROCHLORIDE [Suspect]
     Active Substance: OXYCODONE HYDROCHLORIDE
     Indication: Pain
     Route: 048
  2. CODEINE [Suspect]
     Active Substance: CODEINE
     Indication: Pain
     Route: 065
  3. DARVOCET [Suspect]
     Active Substance: ACETAMINOPHEN\PROPOXYPHENE HYDROCHLORIDE
     Indication: Pain
     Route: 065
  4. VICODIN [Suspect]
     Active Substance: ACETAMINOPHEN\HYDROCODONE BITARTRATE
     Indication: Pain
     Route: 065
  5. ACETAMINOPHEN\OXYCODONE HYDROCHLORIDE\OXYCODONE TEREPHTHALATE [Suspect]
     Active Substance: ACETAMINOPHEN\OXYCODONE HYDROCHLORIDE\OXYCODONE TEREPHTHALATE
     Indication: Pain
     Route: 065

REACTIONS (12)
  - Sphincter of Oddi dysfunction [Unknown]
  - Raynaud^s phenomenon [Unknown]
  - Spinal decompression [Unknown]
  - Intervertebral disc operation [Unknown]
  - Spinal laminectomy [Unknown]
  - Spinal fusion surgery [Unknown]
  - Hip surgery [Unknown]
  - Endoscopic retrograde cholangiopancreatography [Unknown]
  - Oesophagogastroduodenoscopy [Unknown]
  - Unevaluable event [Unknown]
  - Anxiety [Unknown]
  - Depression [Unknown]

NARRATIVE: CASE EVENT DATE: 19970101
